FAERS Safety Report 20664422 (Version 1)
Quarter: 2022Q2

REPORT INFORMATION
  Report Type: Spontaneous
  Country: US (occurrence: US)
  Receive Date: 20220401
  Receipt Date: 20220401
  Transmission Date: 20220720
  Serious: Yes (Other)
  Sender: FDA-Public Use
  Company Number: US-AMGEN-USASP2022053618

PATIENT
  Sex: Female

DRUGS (1)
  1. PROLIA [Suspect]
     Active Substance: DENOSUMAB
     Indication: Osteoporosis postmenopausal
     Dosage: UNK
     Route: 065
     Dates: end: 2021

REACTIONS (3)
  - Osteonecrosis [Unknown]
  - Cellulitis [Unknown]
  - Bone callus excessive [Recovered/Resolved]

NARRATIVE: CASE EVENT DATE: 20210101
